FAERS Safety Report 6262327-0 (Version None)
Quarter: 2009Q3

REPORT INFORMATION
  Report Type: 
  Country: None (occurrence: None)
  Receive Date: 20090709
  Receipt Date: 20090625
  Transmission Date: 20100115
  Serious: Yes (Other)
  Sender: FDA-Public Use
  Company Number: PHHY2009US25734

PATIENT
  Age: 48 Year
  Sex: Male

DRUGS (10)
  1. CYCLOSPORINE [Suspect]
     Indication: RENAL TRANSPLANT
  2. CYCLOSPORINE [Suspect]
     Indication: IMMUNOSUPPRESSION
  3. MYCOPHENOLATE MOFETIL [Suspect]
     Indication: IMMUNOSUPPRESSION
     Dosage: 1 G, BID
  4. PREDNISONE [Suspect]
     Indication: IMMUNOSUPPRESSION
     Dosage: UNK
  5. PRAVASTATIN [Concomitant]
     Dosage: 10 MG/DAY
  6. PRAVASTATIN [Concomitant]
     Dosage: 20 MG/DAY
  7. FENOFIBRATE [Concomitant]
     Dosage: 54 MG/DAY
  8. EZETIMIBE [Concomitant]
     Dosage: 10 MG/DAY
  9. LOPINAVIR [Concomitant]
  10. RITONAVIR [Concomitant]
     Dosage: UNK

REACTIONS (5)
  - BLOOD CREATINE PHOSPHOKINASE INCREASED [None]
  - BLOOD CREATININE INCREASED [None]
  - CHRONIC ALLOGRAFT NEPHROPATHY [None]
  - LIPIDS ABNORMAL [None]
  - NEPHROPATHY TOXIC [None]
